FAERS Safety Report 7386481-2 (Version None)
Quarter: 2011Q1

REPORT INFORMATION
  Report Type: 
  Country: None (occurrence: None)
  Receive Date: 20110329
  Receipt Date: 20110329
  Transmission Date: 20110831
  Serious: Yes (Hospitalization)
  Sender: FDA-Public Use
  Company Number: None

PATIENT
  Sex: Female
  Weight: 81.6 kg

DRUGS (3)
  1. MULTAQ [Concomitant]
  2. ASPIRIN [Concomitant]
  3. PRADAXA [Suspect]
     Dosage: 150 MG Q12H PO
     Route: 048

REACTIONS (2)
  - ANAEMIA [None]
  - GASTROINTESTINAL HAEMORRHAGE [None]
